FAERS Safety Report 5031203-3 (Version None)
Quarter: 2006Q2

REPORT INFORMATION
  Report Type: 
  Country: None (occurrence: None)
  Receive Date: 20060621
  Receipt Date: 20060315
  Transmission Date: 20061013
  Serious: No
  Sender: FDA-Public Use
  Company Number: US-GLAXOSMITHKLINE-A0597705A

PATIENT
  Age: 36 Year
  Sex: Male

DRUGS (3)
  1. AVANDARYL [Suspect]
     Dosage: 1TAB PER DAY
     Route: 048
     Dates: end: 20060312
  2. LIPITOR [Concomitant]
  3. GLUCOSE [Concomitant]

REACTIONS (1)
  - GENITAL RASH [None]
